FAERS Safety Report 5371329-8 (Version None)
Quarter: 2007Q2

REPORT INFORMATION
  Report Type: 
  Country: None (occurrence: None)
  Receive Date: 20070622
  Receipt Date: 20070607
  Transmission Date: 20071010
  Serious: Yes (Life-Threatening, Hospitalization, Other)
  Sender: FDA-Public Use
  Company Number: 100#08#2007-02130

PATIENT
  Age: 47 Year
  Sex: Female

DRUGS (1)
  1. DICLOFENAC (DICLOFENAC) (DICLOFENAC) [Suspect]
     Indication: INTERCOSTAL NEURALGIA
     Dosage: 75 MG INTRAMUSCULAR
     Route: 030

REACTIONS (6)
  - CONDITION AGGRAVATED [None]
  - HAEMODIALYSIS [None]
  - NASAL CONGESTION [None]
  - PNEUMONIA [None]
  - RASH [None]
  - RENAL FAILURE ACUTE [None]
